FAERS Safety Report 22927980 (Version 3)
Quarter: 2023Q4

REPORT INFORMATION
  Report Type: Report from Study
  Country: KR (occurrence: None)
  Receive Date: 20230911
  Receipt Date: 20231024
  Transmission Date: 20240110
  Serious: Yes (Hospitalization)
  Sender: FDA-Public Use
  Company Number: KR-ROCHE-3419081

PATIENT
  Age: 43 Year
  Sex: Male

DRUGS (6)
  1. ATEZOLIZUMAB [Suspect]
     Active Substance: ATEZOLIZUMAB
     Indication: Colorectal cancer metastatic
     Route: 041
     Dates: start: 20230817, end: 20230817
  2. ZANZALINTINIB [Suspect]
     Active Substance: ZANZALINTINIB
     Indication: Colorectal cancer metastatic
     Dosage: MOST RECENT DOSE OF XL092 PRIOR TO EVENT ONSET WAS ON 30/AUG/2023
     Route: 048
     Dates: start: 20230817
  3. FENTORA [Concomitant]
     Active Substance: FENTANYL CITRATE
     Dates: start: 20230817
  4. VIMOVO [Concomitant]
     Active Substance: ESOMEPRAZOLE MAGNESIUM\NAPROXEN
     Dates: start: 20230817
  5. PREGABALIN [Concomitant]
     Active Substance: PREGABALIN
     Dates: start: 20221022
  6. NALOXONE HYDROCHLORIDE\OXYCODONE HYDROCHLORIDE [Concomitant]
     Active Substance: NALOXONE HYDROCHLORIDE\OXYCODONE HYDROCHLORIDE
     Dates: start: 20221014

REACTIONS (2)
  - Rash [Recovered/Resolved]
  - Pyrexia [Recovered/Resolved]

NARRATIVE: CASE EVENT DATE: 20230826
